FAERS Safety Report 25912523 (Version 2)
Quarter: 2025Q4

REPORT INFORMATION
  Report Type: Spontaneous
  Country: US (occurrence: US)
  Receive Date: 20251013
  Receipt Date: 20251026
  Transmission Date: 20260117
  Serious: No
  Sender: SANOFI AVENTIS
  Company Number: US-SA-2025SA303196

PATIENT
  Age: 76 Year
  Sex: Female

DRUGS (1)
  1. DUPIXENT [Suspect]
     Active Substance: DUPILUMAB
     Dosage: 300 MG, BIM
     Route: 058
     Dates: start: 20250910

REACTIONS (5)
  - Eye irritation [Recovering/Resolving]
  - Paraesthesia oral [Recovering/Resolving]
  - Accidental exposure to product [Unknown]
  - Exposure via eye contact [Unknown]
  - Exposure via mucosa [Unknown]

NARRATIVE: CASE EVENT DATE: 20251008
